FAERS Safety Report 7786942-8 (Version None)
Quarter: 2011Q3

REPORT INFORMATION
  Report Type: 
  Country: None (occurrence: None)
  Receive Date: 20110928
  Receipt Date: 20110928
  Transmission Date: 20111222
  Serious: No
  Sender: FDA-Public Use
  Company Number: None

PATIENT
  Age: 56 Year
  Sex: Female
  Weight: 62.4 kg

DRUGS (2)
  1. CARISOPRODOL [Suspect]
     Indication: PAIN
     Dosage: MG PO
     Route: 048
     Dates: start: 20090715, end: 20110927
  2. DIAZEPAM [Suspect]
     Indication: SCHIZOAFFECTIVE DISORDER
     Dosage: MG PO
     Route: 048

REACTIONS (2)
  - SEDATION [None]
  - RESPIRATORY DEPRESSION [None]
